FAERS Safety Report 8021264-1 (Version None)
Quarter: 2012Q1

REPORT INFORMATION
  Report Type: 
  Country: None (occurrence: None)
  Receive Date: 20120104
  Receipt Date: 20111230
  Transmission Date: 20120608
  Serious: Yes (Hospitalization)
  Sender: FDA-Public Use
  Company Number: FR-B.I. PHARMACEUTICALS,INC./RIDGEFIELD-2011-FF-01246FF

PATIENT
  Sex: Male

DRUGS (5)
  1. ZOLPIDEM [Concomitant]
     Dosage: 0.5 MG
     Route: 048
  2. PRADAXA [Suspect]
     Indication: KNEE ARTHROPLASTY
     Dosage: 220 MG
     Route: 048
     Dates: start: 20101201, end: 20101206
  3. FEROGRAD VITAMINE C [Concomitant]
     Route: 048
     Dates: start: 20101203, end: 20101210
  4. ACETAMINOPHEN [Concomitant]
     Route: 048
     Dates: start: 20101202, end: 20101218
  5. NEXIUM [Concomitant]
     Dosage: 20 MG
     Route: 048

REACTIONS (3)
  - OEDEMA PERIPHERAL [None]
  - DRUG INEFFECTIVE [None]
  - PHLEBITIS [None]
